FAERS Safety Report 9375669 (Version 1)
Quarter: 2013Q2

REPORT INFORMATION
  Report Type: Spontaneous
  Country: US (occurrence: US)
  Receive Date: 20130628
  Receipt Date: 20130628
  Transmission Date: 20140414
  Serious: No
  Sender: FDA-Public Use
  Company Number: US-009507513-1306USA010372

PATIENT
  Age: 21 Year
  Sex: Female
  Weight: 55.33 kg

DRUGS (1)
  1. IMPLANON [Suspect]
     Indication: CONTRACEPTION
     Dosage: 1 DF, FOR 3 YEARS
     Route: 059
     Dates: start: 201301

REACTIONS (4)
  - Contusion [Unknown]
  - Abdominal pain [Unknown]
  - Headache [Unknown]
  - Pain in extremity [Unknown]
